FAERS Safety Report 20048591 (Version 3)
Quarter: 2021Q4

REPORT INFORMATION
  Report Type: Report from Study
  Country: ES (occurrence: None)
  Receive Date: 20211109
  Receipt Date: 20211217
  Transmission Date: 20220303
  Serious: Yes (Hospitalization)
  Sender: FDA-Public Use
  Company Number: ES-Eisai Medical Research-EC-2021-102755

PATIENT
  Age: 10 Year
  Sex: Male
  Weight: 33.3 kg

DRUGS (5)
  1. LENVATINIB [Suspect]
     Active Substance: LENVATINIB
     Indication: Ependymoma
     Dosage: STARTING DOSE AT 14 MG QD; FLUCTUATED DOSAGE
     Route: 048
     Dates: start: 20210125, end: 20211031
  2. LEVETIRACETAM [Concomitant]
     Active Substance: LEVETIRACETAM
     Dates: start: 201601, end: 20211030
  3. LOPERAMIDE [Concomitant]
     Active Substance: LOPERAMIDE
     Dates: start: 20210226, end: 20211207
  4. CAPTOPRIL [Concomitant]
     Active Substance: CAPTOPRIL
     Dates: start: 20210519
  5. LEVOTHYROXINE SODIUM [Concomitant]
     Active Substance: LEVOTHYROXINE SODIUM
     Dates: start: 20210908

REACTIONS (1)
  - Haemorrhage intracranial [Recovering/Resolving]

NARRATIVE: CASE EVENT DATE: 20211031
